FAERS Safety Report 17995349 (Version 2)
Quarter: 2020Q3

REPORT INFORMATION
  Report Type: Report from Study
  Country: CA (occurrence: CA)
  Receive Date: 20200708
  Receipt Date: 20200804
  Transmission Date: 20201103
  Serious: Yes (Other)
  Sender: FDA-Public Use
  Company Number: CA-JNJFOC-20200613727

PATIENT
  Age: 53 Year
  Sex: Male
  Weight: 90 kg

DRUGS (2)
  1. STELARA [Suspect]
     Active Substance: USTEKINUMAB
     Route: 058
     Dates: end: 20200625
  2. STELARA [Suspect]
     Active Substance: USTEKINUMAB
     Indication: CROHN^S DISEASE
     Dosage: WEEK 0 DOSE
     Route: 042
     Dates: start: 20200414

REACTIONS (14)
  - Abdominal pain [Not Recovered/Not Resolved]
  - Rectal prolapse [Unknown]
  - Hypopnoea [Unknown]
  - Rectal haemorrhage [Not Recovered/Not Resolved]
  - Anxiety [Unknown]
  - Therapeutic product effect decreased [Unknown]
  - Rectal fissure [Unknown]
  - Painful respiration [Unknown]
  - Vertigo [Not Recovered/Not Resolved]
  - Migraine [Not Recovered/Not Resolved]
  - Diarrhoea [Not Recovered/Not Resolved]
  - Fatigue [Not Recovered/Not Resolved]
  - Flatulence [Unknown]
  - Arthralgia [Unknown]

NARRATIVE: CASE EVENT DATE: 2020
